FAERS Safety Report 6272528-3 (Version None)
Quarter: 2009Q3

REPORT INFORMATION
  Report Type: 
  Country: None (occurrence: None)
  Receive Date: 20090717
  Receipt Date: 20090708
  Transmission Date: 20100115
  Serious: Yes (Other)
  Sender: FDA-Public Use
  Company Number: PHHY2009BR27794

PATIENT
  Sex: Female

DRUGS (7)
  1. DIOVAN [Suspect]
     Dosage: 40 MG
  2. OMEPRAZOLE [Concomitant]
     Dosage: 20 (UNITS NOT PROVIDED)
  3. AMLODIPINE [Concomitant]
     Dosage: 10 (UNITS NOT PROVIDED)
  4. ATENOLOL [Concomitant]
     Dosage: 50 MG
  5. ALDACTONE [Concomitant]
     Dosage: 50 (UNITS NOT PROVIDED)
  6. AAS [Concomitant]
     Dosage: 100 (UNITS NOT PROVIDED)
  7. LIPITOR [Concomitant]
     Dosage: 40 (UNITS NOT PROVIDED)

REACTIONS (2)
  - BLOOD PRESSURE ABNORMAL [None]
  - INFARCTION [None]
